FAERS Safety Report 9893231 (Version 3)
Quarter: 2014Q1

REPORT INFORMATION
  Report Type: Spontaneous
  Country: DE (occurrence: DE)
  Receive Date: 20140213
  Receipt Date: 20140221
  Transmission Date: 20141002
  Serious: Yes (Other)
  Sender: FDA-Public Use
  Company Number: PHHY2013DE135374

PATIENT
  Sex: Female

DRUGS (1)
  1. GILENYA [Suspect]
     Indication: MULTIPLE SCLEROSIS
     Dosage: 0.5 MG, QD
     Route: 048
     Dates: start: 201105, end: 20131220

REACTIONS (7)
  - White blood cell morphology abnormal [Recovered/Resolved]
  - Anisocytosis [Recovered/Resolved]
  - Elliptocytosis [Recovered/Resolved]
  - Myeloblast count increased [Recovered/Resolved]
  - Poikilocytosis [Recovered/Resolved]
  - Neutrophil toxic granulation present [Recovered/Resolved]
  - Lymphocyte count decreased [Recovered/Resolved]
